FAERS Safety Report 7569198-0 (Version None)
Quarter: 2011Q2

REPORT INFORMATION
  Report Type: 
  Country: None (occurrence: None)
  Receive Date: 20110623
  Receipt Date: 20110609
  Transmission Date: 20111010
  Serious: Yes (Hospitalization)
  Sender: FDA-Public Use
  Company Number: PHHY2011US51414

PATIENT
  Sex: Male

DRUGS (1)
  1. GLEEVEC [Suspect]
     Indication: ACUTE LYMPHOCYTIC LEUKAEMIA
     Dosage: 400 MG, DAILY
     Route: 048
     Dates: start: 20110513

REACTIONS (6)
  - DEHYDRATION [None]
  - FLUID RETENTION [None]
  - RETCHING [None]
  - APHAGIA [None]
  - ULCER HAEMORRHAGE [None]
  - VOMITING [None]
